FAERS Safety Report 4666260-7 (Version None)
Quarter: 2005Q2

REPORT INFORMATION
  Report Type: 
  Country: None (occurrence: None)
  Receive Date: 20050518
  Receipt Date: 20050518
  Transmission Date: 20051028
  Serious: Yes (Death)
  Sender: FDA-Public Use
  Company Number: None

PATIENT
  Age: 68 Year
  Sex: Female
  Weight: 72.5755 kg

DRUGS (1)
  1. RELAFEN [Suspect]
     Indication: ARTHRITIS
     Dosage: 2 TABS DAILY

REACTIONS (3)
  - CARDIAC FAILURE CONGESTIVE [None]
  - RENAL FAILURE [None]
  - RESPIRATORY FAILURE [None]
